FAERS Safety Report 14356961 (Version 2)
Quarter: 2018Q1

REPORT INFORMATION
  Report Type: Spontaneous
  Country: US (occurrence: US)
  Receive Date: 20180105
  Receipt Date: 20180208
  Transmission Date: 20180509
  Serious: No
  Sender: FDA-Public Use
  Company Number: US-PFIZER INC-2018003652

PATIENT
  Age: 6 Year
  Sex: Male
  Weight: 21.5 kg

DRUGS (1)
  1. GENOTROPIN [Suspect]
     Active Substance: SOMATROPIN
     Indication: GROWTH ACCELERATED
     Dosage: 0.8 MG, UNK
     Route: 058

REACTIONS (1)
  - Drug ineffective [Unknown]
